FAERS Safety Report 6512166-8 (Version None)
Quarter: 2009Q4

REPORT INFORMATION
  Report Type: 
  Country: None (occurrence: None)
  Receive Date: 20091222
  Receipt Date: 20090615
  Transmission Date: 20100525
  Serious: No
  Sender: FDA-Public Use
  Company Number: US-ASTRAZENECA-2009UW15178

PATIENT
  Age: 38 Year
  Sex: Female
  Weight: 66.2 kg

DRUGS (5)
  1. CRESTOR [Suspect]
     Indication: BLOOD CHOLESTEROL DECREASED
     Route: 048
     Dates: start: 20090401
  2. ALPRAZOLAM [Concomitant]
     Indication: ANXIETY
  3. LEXAPRO [Concomitant]
     Indication: DEPRESSION
  4. SYNTHROID [Concomitant]
     Indication: THYROID DISORDER
  5. FLAXOIL [Concomitant]
     Indication: BLOOD CHOLESTEROL ABNORMAL

REACTIONS (2)
  - PAIN [None]
  - PAIN IN EXTREMITY [None]
